FAERS Safety Report 12892638 (Version 1)
Quarter: 2016Q4

REPORT INFORMATION
  Report Type: Spontaneous
  Country: US (occurrence: US)
  Receive Date: 20161027
  Receipt Date: 20161027
  Transmission Date: 20170207
  Serious: Yes (Hospitalization)
  Sender: FDA-Public Use
  Company Number: None

PATIENT
  Age: 1 Year
  Sex: Female
  Weight: 11.2 kg

DRUGS (6)
  1. MERCAPTOPURINE. [Suspect]
     Active Substance: MERCAPTOPURINE
     Dates: end: 20161004
  2. VINCRISTINE [Suspect]
     Active Substance: VINCRISTINE
     Dates: end: 20161011
  3. ONCASPAR [Suspect]
     Active Substance: PEGASPARGASE
  4. CYCLOPHOSPHAMIDE. [Suspect]
     Active Substance: CYCLOPHOSPHAMIDE
     Dates: end: 20160922
  5. CYTARABINE. [Suspect]
     Active Substance: CYTARABINE
     Dates: end: 20161001
  6. METHOTREXATE. [Suspect]
     Active Substance: METHOTREXATE
     Dates: end: 20161011

REACTIONS (5)
  - Toxicity to various agents [None]
  - Rhinovirus infection [None]
  - Seizure [None]
  - Febrile neutropenia [None]
  - Respiratory syncytial virus test positive [None]

NARRATIVE: CASE EVENT DATE: 20161007
